FAERS Safety Report 8853093 (Version 3)
Quarter: 2013Q4

REPORT INFORMATION
  Report Type: Spontaneous
  Country: US (occurrence: US)
  Receive Date: 20121022
  Receipt Date: 20131101
  Transmission Date: 20140711
  Serious: No
  Sender: FDA-Public Use
  Company Number: US-009507513-1210USA004590

PATIENT
  Age: 31 Year
  Sex: Female

DRUGS (2)
  1. AZASITE [Suspect]
     Indication: INFECTION
     Dosage: 1 GTT, BID X 2 D
     Route: 047
  2. AZASITE [Suspect]
     Dosage: FOR 5 D
     Route: 047
     Dates: start: 20121004, end: 20121007

REACTIONS (3)
  - Drug dose omission [Recovered/Resolved]
  - Product quality issue [Recovered/Resolved]
  - No adverse event [Unknown]
